FAERS Safety Report 8766398 (Version 1)
Quarter: 2012Q4

REPORT INFORMATION
  Report Type: 
  Country: CH (occurrence: CH)
  Receive Date: 20120904
  Receipt Date: 20120904
  Transmission Date: 20130627
  Serious: Yes (Other)
  Sender: FDA-Public Use
  Company Number: CH-JNJFOC-20120810374

PATIENT
  Age: 37 Year
  Sex: Male

DRUGS (4)
  1. PALIPERIDONE PALMITATE [Suspect]
     Indication: SCHIZOPHRENIA, PARANOID TYPE
     Route: 030
     Dates: start: 201110
  2. GLUCOPHAGE [Concomitant]
     Indication: WEIGHT INCREASED
     Dosage: Start date was reported as ^for a while^
     Route: 048
  3. GLUCOPHAGE [Concomitant]
     Indication: DIABETES MELLITUS
     Dosage: Start date was reported as ^for a while^
     Route: 048
  4. ASPIRINE CARDIO [Concomitant]
     Indication: PRODUCT USED FOR UNKNOWN INDICATION
     Dosage: Start date was reported as ^for a while^
     Route: 048

REACTIONS (2)
  - Osteonecrosis [Unknown]
  - Hypersensitivity [Not Recovered/Not Resolved]
